FAERS Safety Report 21802424 (Version 1)
Quarter: 2022Q4

REPORT INFORMATION
  Report Type: Spontaneous
  Country: BE (occurrence: BE)
  Receive Date: 20221231
  Receipt Date: 20221231
  Transmission Date: 20230113
  Serious: Yes (Other)
  Sender: FDA-Public Use
  Company Number: BE-FAMHP-DHH-N2021-85055

PATIENT
  Age: 35 Year
  Sex: Female
  Weight: 61 kg

DRUGS (2)
  1. DROSPIRENONE\ETHINYL ESTRADIOL [Suspect]
     Active Substance: DROSPIRENONE\ETHINYL ESTRADIOL
     Indication: Contraception
     Dosage: 1 DOSAGE FORM, ONCE A DAY (CONTINUOUSLY)
     Route: 048
     Dates: start: 2020, end: 2020
  2. LEVOTHYROXINE [Concomitant]
     Active Substance: LEVOTHYROXINE
     Indication: Product used for unknown indication
     Dosage: 0.5 DOSAGE FORM
     Route: 065

REACTIONS (3)
  - Pruritus [Recovering/Resolving]
  - Arthralgia [Recovering/Resolving]
  - Urticarial vasculitis [Recovering/Resolving]

NARRATIVE: CASE EVENT DATE: 20201017
